FAERS Safety Report 12346053 (Version 1)
Quarter: 2016Q2

REPORT INFORMATION
  Report Type: Spontaneous
  Country: FR (occurrence: FR)
  Receive Date: 20160509
  Receipt Date: 20160509
  Transmission Date: 20160815
  Serious: Yes (Hospitalization)
  Sender: FDA-Public Use
  Company Number: PHHY2016FR060466

PATIENT
  Age: 76 Year
  Sex: Male

DRUGS (9)
  1. MICARDIS [Concomitant]
     Active Substance: TELMISARTAN
     Indication: PRODUCT USED FOR UNKNOWN INDICATION
     Dosage: 80 MG, QD (1 TABLET IN THE MORNING)
     Route: 065
  2. CRESTOR [Concomitant]
     Active Substance: ROSUVASTATIN CALCIUM
     Indication: PRODUCT USED FOR UNKNOWN INDICATION
     Dosage: 5 MG, BID (2 TABLETS IN THE EVENING)
     Route: 065
  3. XATRAL [Concomitant]
     Active Substance: ALFUZOSIN
     Indication: PRODUCT USED FOR UNKNOWN INDICATION
     Dosage: 10 MG, QD (1 TABLET IN THE EVENING)
     Route: 065
  4. MOVICOL [Concomitant]
     Active Substance: POLYETHYLENE GLYCOL 3350\POTASSIUM CHLORIDE\SODIUM BICARBONATE\SODIUM CHLORIDE
     Indication: PRODUCT USED FOR UNKNOWN INDICATION
     Dosage: 1 DF, TID (1 SACHET IN THE MORNING, AT MID DAY AND IN THE EVENING)
     Route: 065
  5. BROMAZEPAM [Concomitant]
     Active Substance: BROMAZEPAM
     Indication: PRODUCT USED FOR UNKNOWN INDICATION
     Dosage: 1.5 MG, PRN (1/4 TABLET IF NEEDED)
     Route: 065
  6. SERETIDE [Concomitant]
     Active Substance: FLUTICASONE PROPIONATE\SALMETEROL XINAFOATE
     Indication: PRODUCT USED FOR UNKNOWN INDICATION
     Dosage: 1 DF, BID
     Route: 055
  7. KARDEGIC [Concomitant]
     Active Substance: ASPIRIN LYSINE
     Indication: PRODUCT USED FOR UNKNOWN INDICATION
     Dosage: 160 MG, QHS
     Route: 065
  8. TADENAN [Concomitant]
     Active Substance: PYGEUM
     Indication: PRODUCT USED FOR UNKNOWN INDICATION
     Dosage: 50 MG, BID (1 TABLET IN THE MORNING AND IN THE EVENING)
     Route: 065
  9. TAFINLAR [Suspect]
     Active Substance: DABRAFENIB MESYLATE
     Indication: MALIGNANT MELANOMA STAGE IV
     Dosage: UNK
     Route: 048
     Dates: start: 20160216, end: 20160226

REACTIONS (1)
  - Chondrocalcinosis [Recovered/Resolved]

NARRATIVE: CASE EVENT DATE: 20160226
